FAERS Safety Report 6813961-8 (Version None)
Quarter: 2010Q3

REPORT INFORMATION
  Report Type: 
  Country: None (occurrence: None)
  Receive Date: 20100702
  Receipt Date: 20100623
  Transmission Date: 20110219
  Serious: Yes (Hospitalization)
  Sender: FDA-Public Use
  Company Number: CA-JNJFOC-20100608238

PATIENT
  Sex: Female
  Weight: 71.8 kg

DRUGS (1)
  1. REMICADE [Suspect]
     Indication: CROHN'S DISEASE
     Dosage: RECEIVED INFLIXIMAB THERAPY SINCE AGE 7 (APPROXIMATELY 40 INFUSIONS)
     Route: 042

REACTIONS (1)
  - TONSILLECTOMY [None]
